FAERS Safety Report 8520321-0 (Version None)
Quarter: 2012Q3

REPORT INFORMATION
  Report Type: 
  Country: None (occurrence: None)
  Receive Date: 20120719
  Receipt Date: 20120703
  Transmission Date: 20120928
  Serious: No
  Sender: FDA-Public Use
  Company Number: US-TEVA-346758USA

PATIENT
  Age: 50 Year
  Sex: Female

DRUGS (8)
  1. NUVIGIL [Suspect]
     Indication: SLEEP APNOEA SYNDROME
     Route: 048
     Dates: start: 20110101
  2. REQUIP [Concomitant]
  3. VITAMIN D [Concomitant]
  4. NUVIGIL [Suspect]
     Indication: CIRCADIAN RHYTHM SLEEP DISORDER
  5. CALCIUM [Concomitant]
  6. GLUCOSAMINE [Concomitant]
  7. FISH OIL [Concomitant]
  8. VYVANSE [Concomitant]

REACTIONS (1)
  - DRUG INEFFECTIVE [None]
